FAERS Safety Report 7851936-0 (Version None)
Quarter: 2011Q4

REPORT INFORMATION
  Report Type: 
  Country: None (occurrence: None)
  Receive Date: 20111026
  Receipt Date: 20111021
  Transmission Date: 20120403
  Serious: Yes (Other)
  Sender: FDA-Public Use
  Company Number: DE-SANOFI-AVENTIS-2011SA069622

PATIENT
  Age: 12 Year
  Sex: Male

DRUGS (1)
  1. FERRLECIT [Suspect]
     Route: 050
     Dates: start: 20111001, end: 20111001

REACTIONS (9)
  - APPLICATION SITE NODULE [None]
  - APPLICATION SITE INDURATION [None]
  - APPLICATION SITE WARMTH [None]
  - NECROSIS [None]
  - OSTEONECROSIS [None]
  - APPLICATION SITE ERYTHEMA [None]
  - APPLICATION SITE SWELLING [None]
  - WRONG TECHNIQUE IN DRUG USAGE PROCESS [None]
  - APPLICATION SITE PAIN [None]
